FAERS Safety Report 9477303 (Version 3)
Quarter: 2015Q1

REPORT INFORMATION
  Report Type: Report from Study
  Country: JP (occurrence: JP)
  Receive Date: 20130826
  Receipt Date: 20150127
  Transmission Date: 20150721
  Serious: Yes (Death, Life-Threatening)
  Sender: FDA-Public Use
  Company Number: JP-009507513-1308JPN010617

PATIENT
  Age: 60 Year
  Sex: Male

DRUGS (5)
  1. ISENTRESS [Suspect]
     Active Substance: RALTEGRAVIR POTASSIUM
     Dosage: 800 MG, QD(ALSO REPORTED AS DIVIDED DOSE FREQUENCY UNKNOWN)
     Route: 048
     Dates: start: 20120111, end: 20120922
  2. TRUVADA [Suspect]
     Active Substance: EMTRICITABINE\TENOFOVIR DISOPROXIL FUMARATE
     Dosage: 1 TABLET, QD (ALSO REPORTED AS DIVIDED DOSE FREQUENCY UNKNOWN)
     Route: 048
     Dates: start: 20120221, end: 20120922
  3. ISENTRESS [Suspect]
     Active Substance: RALTEGRAVIR POTASSIUM
     Indication: HIV INFECTION
     Dosage: 800 MG, QD(ALSO REPORTED AS DIVIDED DOSE FREQUENCY UNKNOWN)
     Route: 048
     Dates: start: 20111115, end: 20111124
  4. TRUVADA [Suspect]
     Active Substance: EMTRICITABINE\TENOFOVIR DISOPROXIL FUMARATE
     Indication: HIV INFECTION
     Dosage: 1 TABLET, QD(ALSO REPORTED AS DIVIDED DOSE FREQUENCY UNKNOWN)
     Route: 048
     Dates: start: 20111115, end: 20111123
  5. ATOVAQUONE. [Suspect]
     Active Substance: ATOVAQUONE
     Indication: ANTIFUNGAL PROPHYLAXIS
     Dosage: 750 MG, BID (FORMULATION: POR)
     Route: 048
     Dates: start: 20120612, end: 20120922

REACTIONS (6)
  - Blood lactate dehydrogenase increased [Not Recovered/Not Resolved]
  - Platelet count decreased [Not Recovered/Not Resolved]
  - Bronchopulmonary aspergillosis [Fatal]
  - Irritability [Not Recovered/Not Resolved]
  - C-reactive protein increased [Not Recovered/Not Resolved]
  - Haemoglobin decreased [Not Recovered/Not Resolved]

NARRATIVE: CASE EVENT DATE: 20120608
